FAERS Safety Report 15056335 (Version 1)
Quarter: 2018Q3

REPORT INFORMATION
  Report Type: Spontaneous
  Country: US (occurrence: US)
  Receive Date: 20180622
  Receipt Date: 20180622
  Transmission Date: 20181010
  Serious: Yes (Hospitalization, Other)
  Sender: FDA-Public Use
  Company Number: US-GILEAD-2018-0344690

PATIENT
  Age: 51 Year
  Sex: Female

DRUGS (5)
  1. DIPHENHYDRAMINE. [Concomitant]
     Active Substance: DIPHENHYDRAMINE
     Indication: PRODUCT USED FOR UNKNOWN INDICATION
     Dosage: 12.5 MG, SINGLE
     Route: 042
     Dates: start: 20180228, end: 20180228
  2. ACETAMINOPHEN. [Concomitant]
     Active Substance: ACETAMINOPHEN
     Indication: PRODUCT USED FOR UNKNOWN INDICATION
     Dosage: 650 MG, SINGLE
     Route: 048
     Dates: start: 20180228, end: 20180228
  3. FLUCONAZOLE. [Concomitant]
     Active Substance: FLUCONAZOLE
     Indication: PRODUCT USED FOR UNKNOWN INDICATION
     Dosage: 400 MG, QD
     Route: 048
     Dates: start: 20180301, end: 20180308
  4. LEVOFLOXACIN. [Concomitant]
     Active Substance: LEVOFLOXACIN
     Indication: PRODUCT USED FOR UNKNOWN INDICATION
     Dosage: 500 MG, QD
     Route: 048
     Dates: start: 20180301, end: 20180309
  5. YESCARTA [Suspect]
     Active Substance: AXICABTAGENE CILOLEUCEL
     Indication: DIFFUSE LARGE B-CELL LYMPHOMA
     Dosage: 2X10^8 T CELLS/KG, 68 ML, SINGLE
     Route: 042
     Dates: start: 20180228, end: 20180228

REACTIONS (2)
  - Pancytopenia [Recovering/Resolving]
  - Febrile neutropenia [Unknown]

NARRATIVE: CASE EVENT DATE: 20180309
